FAERS Safety Report 15718429 (Version 4)
Quarter: 2019Q1

REPORT INFORMATION
  Report Type: Spontaneous
  Country: US (occurrence: US)
  Receive Date: 20181213
  Receipt Date: 20190121
  Transmission Date: 20190417
  Serious: Yes (Hospitalization, Other)
  Sender: FDA-Public Use
  Company Number: US-UNITED THERAPEUTICS-UNT-2018-020402

PATIENT
  Age: 63 Year
  Sex: Female
  Weight: 82.99 kg

DRUGS (1)
  1. REMODULIN [Suspect]
     Active Substance: TREPROSTINIL
     Indication: PULMONARY ARTERIAL HYPERTENSION
     Dosage: 0.110 ?G/KG, CONTINUING
     Route: 058
     Dates: start: 20151127

REACTIONS (2)
  - Respiratory failure [Recovered/Resolved]
  - Scleroderma [Recovered/Resolved]

NARRATIVE: CASE EVENT DATE: 20181204
